FAERS Safety Report 9571123 (Version 1)
Quarter: 2013Q4

REPORT INFORMATION
  Report Type: Spontaneous
  Country: BR (occurrence: BR)
  Receive Date: 20131001
  Receipt Date: 20131001
  Transmission Date: 20140711
  Serious: Yes (Other)
  Sender: FDA-Public Use
  Company Number: PHHY2013BR108599

PATIENT
  Age: 11 Year
  Sex: Male

DRUGS (1)
  1. RITALIN LA [Suspect]
     Indication: PSYCHOMOTOR HYPERACTIVITY
     Dosage: ONE CAPSULE IN THE MORNING AND ANOTHERCAPSULE IN THE AFTERNOON (1 DF, BID)
     Route: 048
     Dates: start: 201308

REACTIONS (5)
  - Obesity [Not Recovered/Not Resolved]
  - Increased appetite [Not Recovered/Not Resolved]
  - Nervousness [Not Recovered/Not Resolved]
  - Agitation [Not Recovered/Not Resolved]
  - Disturbance in attention [Not Recovered/Not Resolved]
